FAERS Safety Report 6437885-3 (Version None)
Quarter: 2009Q4

REPORT INFORMATION
  Report Type: 
  Country: None (occurrence: None)
  Receive Date: 20091112
  Receipt Date: 20081103
  Transmission Date: 20100525
  Serious: No
  Sender: FDA-Public Use
  Company Number: US-ASTRAZENECA-2009UW16015

PATIENT
  Age: 49 Year
  Sex: Female

DRUGS (1)
  1. PRILOSEC OTC [Suspect]
     Dosage: 2 TABLET, 1 /DAY FOR 2 DAYS
     Route: 048
     Dates: start: 20081031, end: 20081101

REACTIONS (2)
  - INCORRECT DOSE ADMINISTERED [None]
  - PAIN [None]
